FAERS Safety Report 12865078 (Version 1)
Quarter: 2016Q4

REPORT INFORMATION
  Report Type: Spontaneous
  Country: US (occurrence: US)
  Receive Date: 20161018
  Receipt Date: 20161018
  Transmission Date: 20170207
  Serious: No
  Sender: FDA-Public Use
  Company Number: None

PATIENT
  Age: 61 Year
  Sex: Male

DRUGS (2)
  1. HARVONI [Suspect]
     Active Substance: LEDIPASVIR\SOFOSBUVIR
     Indication: CHRONIC HEPATITIS C
  2. RIBAVIRIN 200MG CAPS [Suspect]
     Active Substance: RIBAVIRIN

REACTIONS (2)
  - Headache [None]
  - Hypoaesthesia [None]

NARRATIVE: CASE EVENT DATE: 20161018
